FAERS Safety Report 17011893 (Version 1)
Quarter: 2019Q4

REPORT INFORMATION
  Report Type: Spontaneous
  Country: US (occurrence: US)
  Receive Date: 20191108
  Receipt Date: 20191108
  Transmission Date: 20200122
  Serious: Yes (Other)
  Sender: FDA-Public Use
  Company Number: US-TEVA-2019-US-1132915

PATIENT
  Age: 65 Year
  Sex: Female

DRUGS (3)
  1. VENLAFAXINE HYDROCHLORIDE EXTENDED-RELEASE CAPSULES [Suspect]
     Active Substance: VENLAFAXINE HYDROCHLORIDE
     Indication: AFFECTIVE DISORDER
  2. VENLAFAXINE HYDROCHLORIDE EXTENDED-RELEASE CAPSULES [Suspect]
     Active Substance: VENLAFAXINE HYDROCHLORIDE
     Indication: BIPOLAR DISORDER
     Dosage: 75 MILLIGRAM DAILY; TAKES THE MEDICATION EARLY EVERY MORNING
     Route: 065
     Dates: start: 201908
  3. VENLAFAXINE HYDROCHLORIDE EXTENDED-RELEASE CAPSULES [Suspect]
     Active Substance: VENLAFAXINE HYDROCHLORIDE
     Indication: ANXIETY

REACTIONS (5)
  - Respiratory arrest [Recovered/Resolved]
  - Visual agnosia [Unknown]
  - Thinking abnormal [Unknown]
  - Memory impairment [Unknown]
  - Pulse absent [Recovered/Resolved]
